FAERS Safety Report 5156168-5 (Version None)
Quarter: 2006Q4

REPORT INFORMATION
  Report Type: 
  Country: None (occurrence: None)
  Receive Date: 20061122
  Receipt Date: 20061109
  Transmission Date: 20070319
  Serious: Yes (Other)
  Sender: FDA-Public Use
  Company Number: US-ELI_LILLY_AND_COMPANY-US200611001955

PATIENT
  Sex: Female

DRUGS (1)
  1. EVISTA [Suspect]
     Indication: HYPERPLASIA
     Dosage: 60 MG, DAILY (1/D)
     Dates: start: 20060501

REACTIONS (5)
  - CERVICAL DYSPLASIA [None]
  - FLUSHING [None]
  - MUSCLE SPASMS [None]
  - VAGINAL DISCHARGE [None]
  - VAGINAL HAEMORRHAGE [None]
